FAERS Safety Report 4832599-5 (Version None)
Quarter: 2005Q4

REPORT INFORMATION
  Report Type: 
  Country: None (occurrence: None)
  Receive Date: 20051121
  Receipt Date: 20051109
  Transmission Date: 20060501
  Serious: Yes (Hospitalization)
  Sender: FDA-Public Use
  Company Number: US-JNJFOC-20051102611

PATIENT
  Sex: Female
  Weight: 67.13 kg

DRUGS (11)
  1. INFLIXIMAB [Suspect]
     Indication: RHEUMATOID ARTHRITIS
     Route: 042
  2. ESTRATEST [Concomitant]
  3. ESTRATEST [Concomitant]
  4. HYDROCHLOROTHIAZIDE [Concomitant]
  5. MIACALCIN [Concomitant]
  6. NEURONTIN [Concomitant]
  7. TIAZAC [Concomitant]
  8. ULTRAM [Concomitant]
  9. NEXIUM [Concomitant]
  10. SINGULAIR [Concomitant]
  11. ZOCOR [Concomitant]

REACTIONS (2)
  - HIATUS HERNIA [None]
  - PULMONARY EMBOLISM [None]
